FAERS Safety Report 8486705-4 (Version None)
Quarter: 2012Q3

REPORT INFORMATION
  Report Type: 
  Country: None (occurrence: None)
  Receive Date: 20120704
  Receipt Date: 20120627
  Transmission Date: 20120928
  Serious: Yes (Hospitalization)
  Sender: FDA-Public Use
  Company Number: US-AMGEN-USASP2012040026

PATIENT
  Age: 68 Year
  Sex: Female

DRUGS (1)
  1. ENBREL [Suspect]
     Indication: RHEUMATOID ARTHRITIS
     Dosage: 25 MG, EVERY 5 DAYS
     Dates: start: 20080312

REACTIONS (7)
  - TRIGEMINAL NEURALGIA [None]
  - PAIN IN EXTREMITY [None]
  - LATEX ALLERGY [None]
  - FALL [None]
  - HAEMORRHOIDS [None]
  - SPINAL FRACTURE [None]
  - TREMOR [None]
